FAERS Safety Report 5522852-4 (Version None)
Quarter: 2007Q4

REPORT INFORMATION
  Report Type: 
  Country: None (occurrence: None)
  Receive Date: 20071119
  Receipt Date: 20071119
  Transmission Date: 20080405
  Serious: No
  Sender: FDA-Public Use
  Company Number: None

PATIENT
  Sex: Female
  Weight: 124.7392 kg

DRUGS (1)
  1. TUBERSOL [Suspect]
     Indication: TUBERCULIN TEST
     Dosage: 0.1 ML ID
     Route: 026

REACTIONS (3)
  - INJECTION SITE ERYTHEMA [None]
  - INJECTION SITE WARMTH [None]
  - PRURITUS [None]
